FAERS Safety Report 14219273 (Version 2)
Quarter: 2024Q1

REPORT INFORMATION
  Report Type: Spontaneous
  Country: US (occurrence: US)
  Receive Date: 20171123
  Receipt Date: 20240118
  Transmission Date: 20240410
  Serious: No
  Sender: FDA-Public Use
  Company Number: US-JNJFOC-20171031399

PATIENT
  Age: 17 Year
  Sex: Male

DRUGS (3)
  1. RISPERDAL [Suspect]
     Active Substance: RISPERIDONE
     Indication: Drug therapy
     Route: 048
     Dates: start: 20051118, end: 20120209
  2. RISPERDAL [Suspect]
     Active Substance: RISPERIDONE
     Indication: Anxiety
  3. RISPERDAL [Suspect]
     Active Substance: RISPERIDONE
     Indication: Depression

REACTIONS (6)
  - Emotional disorder [Unknown]
  - Gynaecomastia [Unknown]
  - Somnolence [Recovering/Resolving]
  - Weight increased [Unknown]
  - Treatment noncompliance [Unknown]
  - Off label use [Unknown]

NARRATIVE: CASE EVENT DATE: 20051118
